FAERS Safety Report 16372264 (Version 2)
Quarter: 2019Q3

REPORT INFORMATION
  Report Type: Spontaneous
  Country: NL (occurrence: RO)
  Receive Date: 20190530
  Receipt Date: 20190712
  Transmission Date: 20191004
  Serious: Yes (Death, Other)
  Sender: FDA-Public Use
  Company Number: RO-FRESENIUS KABI-FK201905947

PATIENT
  Age: 67 Year
  Sex: Male

DRUGS (4)
  1. OXALIPLATIN (MANUFACTURER UNKNOWN) [Suspect]
     Active Substance: OXALIPLATIN
     Indication: ADENOCARCINOMA OF COLON
     Route: 065
     Dates: start: 20180323, end: 2019
  2. LEUCOVORIN CALCIUM (MANUFACTURER UNKNOWN) [Suspect]
     Active Substance: LEUCOVORIN CALCIUM
     Indication: ADENOCARCINOMA OF COLON
     Route: 065
     Dates: start: 20180323, end: 2019
  3. FLUOROURACIL. [Suspect]
     Active Substance: FLUOROURACIL
     Indication: ADENOCARCINOMA OF COLON
     Route: 065
     Dates: start: 20180323, end: 2019
  4. BEVACIZUMAB. [Suspect]
     Active Substance: BEVACIZUMAB
     Indication: ADENOCARCINOMA OF COLON
     Route: 065
     Dates: start: 20180323, end: 2019

REACTIONS (13)
  - Vertigo [Fatal]
  - Cholestasis [Fatal]
  - Blood pressure fluctuation [Fatal]
  - Fatigue [Fatal]
  - Faeces pale [Fatal]
  - Jaundice [Fatal]
  - Biliary tract disorder [Fatal]
  - Gait disturbance [Fatal]
  - Hepatocellular injury [Fatal]
  - Thrombocytopenia [Fatal]
  - Choluria [Fatal]
  - Neurotoxicity [Fatal]
  - Asthenia [Fatal]
